FAERS Safety Report 5676260-6 (Version None)
Quarter: 2008Q1

REPORT INFORMATION
  Report Type: 
  Country: None (occurrence: None)
  Receive Date: 20080321
  Receipt Date: 20080311
  Transmission Date: 20080703
  Serious: Yes (Hospitalization, Other)
  Sender: FDA-Public Use
  Company Number: AU-PFIZER INC-2007106293

PATIENT
  Age: 76 Year
  Sex: Female

DRUGS (13)
  1. SU-011,248 [Suspect]
     Indication: GASTROINTESTINAL STROMAL TUMOUR
     Route: 048
     Dates: start: 20040907, end: 20071112
  2. LEVOTHYROXINE SODIUM [Concomitant]
     Route: 048
  3. LASIX [Concomitant]
     Route: 048
  4. SLOW-K [Concomitant]
     Route: 048
  5. TRITACE [Concomitant]
     Route: 048
  6. AMLODIPINE [Concomitant]
     Route: 048
  7. KARVEA [Concomitant]
     Route: 048
  8. METHYLDOPA [Concomitant]
     Route: 048
  9. PREDNISOLONE [Concomitant]
     Route: 048
  10. SPIRONOLACTONE [Concomitant]
     Route: 048
  11. LOSEC I.V. [Concomitant]
     Route: 048
  12. MAXOLON [Concomitant]
     Route: 048
  13. CYCLIZINE [Concomitant]
     Route: 048

REACTIONS (1)
  - RENAL IMPAIRMENT [None]
